FAERS Safety Report 10339586 (Version 1)
Quarter: 2020Q3

REPORT INFORMATION
  Report Type: Report from Study
  Country: IT (occurrence: IT)
  Receive Date: 20140724
  Receipt Date: 20140724
  Transmission Date: 20201104
  Serious: Yes (Hospitalization)
  Sender: FDA-Public Use
  Company Number: PHHY2014IT087113

PATIENT
  Age: 45 Year
  Sex: Male

DRUGS (10)
  1. CALCIUM FOLINATE [Suspect]
     Active Substance: LEUCOVORIN CALCIUM
     Indication: GASTROOESOPHAGEAL CANCER
     Dosage: 378 MG, 1 IN 2 WEEK
     Route: 042
     Dates: start: 20131227, end: 20140626
  2. ALOXI [Concomitant]
     Active Substance: PALONOSETRON HYDROCHLORIDE
     Indication: PROPHYLACTIC CHEMOTHERAPY
     Dosage: 250 UG, UNK
     Route: 042
     Dates: start: 20140123
  3. OXALIPLATIN. [Suspect]
     Active Substance: OXALIPLATIN
     Indication: GASTROOESOPHAGEAL CANCER
     Dosage: 128.52 MG 1 IN 2 WEEK
     Route: 042
     Dates: start: 20131227, end: 20140626
  4. 5 FLUORO URACIL [Suspect]
     Active Substance: FLUOROURACIL
     Dosage: 4536 MG, UNK
     Route: 042
     Dates: start: 20131227, end: 20140628
  5. PLASIL [Concomitant]
     Active Substance: METOCLOPRAMIDE HYDROCHLORIDE
     Indication: NAUSEA
     Dosage: 10 MG, UNK
     Route: 048
     Dates: start: 20140109
  6. CREON [Concomitant]
     Active Substance: PANCRELIPASE AMYLASE\PANCRELIPASE LIPASE\PANCRELIPASE PROTEASE
     Dosage: 150 MG, UNK
     Route: 048
     Dates: start: 20131223
  7. 5 FLUORO URACIL [Suspect]
     Active Substance: FLUOROURACIL
     Indication: GASTROOESOPHAGEAL CANCER
     Dosage: 756 MG, 1 IN 2 WEEK
     Route: 040
     Dates: start: 20131227, end: 20140626
  8. ONARTUZUMAB. [Suspect]
     Active Substance: ONARTUZUMAB
     Indication: GASTROOESOPHAGEAL CANCER
     Dosage: 1 DF, 1 IN 2 WEEKS
     Route: 042
     Dates: start: 20131227, end: 20140416
  9. APREPITANT. [Concomitant]
     Active Substance: APREPITANT
     Indication: PROPHYLACTIC CHEMOTHERAPY
     Dosage: 125 MG, UNK
     Route: 048
     Dates: start: 20140123
  10. DECADRON [Concomitant]
     Active Substance: DEXAMETHASONE
     Indication: PROPHYLACTIC CHEMOTHERAPY
     Dosage: 8 MG, UNK
     Route: 042
     Dates: start: 20131227

REACTIONS (2)
  - Vomiting [Not Recovered/Not Resolved]
  - Abdominal pain [Not Recovered/Not Resolved]

NARRATIVE: CASE EVENT DATE: 20140708
